FAERS Safety Report 11139920 (Version 1)
Quarter: 2015Q2

REPORT INFORMATION
  Report Type: Spontaneous
  Country: US (occurrence: None)
  Receive Date: 20150526
  Receipt Date: 20150526
  Transmission Date: 20150821
  Serious: No
  Sender: FDA-Public Use
  Company Number: None

PATIENT
  Age: 53 Year
  Sex: Male

DRUGS (14)
  1. ASPIRIN. [Concomitant]
     Active Substance: ASPIRIN
  2. OMEPRAZOLE (PRILOSEC) [Concomitant]
  3. DIPHENHYDRAMINE (Q-DRYL) [Concomitant]
  4. NITROGLYCERIN (NITROSTAT) [Concomitant]
  5. WARFARIN (COUMADIN) [Concomitant]
  6. ACETAMINOPHEN (MAPAP) [Concomitant]
  7. AMPYRA [Suspect]
     Active Substance: DALFAMPRIDINE
     Indication: MULTIPLE SCLEROSIS
     Route: 048
     Dates: start: 201307
  8. HYDROCODONE-ACETAMINOPHEN (HYCET) [Concomitant]
  9. METOPROLOL TARTRATE (LOPRESSOR) [Concomitant]
  10. CLOBETASOL (TEMOVATE) [Concomitant]
  11. RIFAMPIN (RIFADIN) [Concomitant]
  12. DOCUSATE SODIUM (COLACE) [Concomitant]
  13. BISACODYL (DULCOLAX) [Concomitant]
  14. SENNOSIDES (SENNA) [Concomitant]

REACTIONS (1)
  - Laboratory test abnormal [None]

NARRATIVE: CASE EVENT DATE: 20150204
